FAERS Safety Report 8215143-4 (Version None)
Quarter: 2012Q1

REPORT INFORMATION
  Report Type: 
  Country: None (occurrence: None)
  Receive Date: 20120316
  Receipt Date: 20120306
  Transmission Date: 20120608
  Serious: Yes (Hospitalization)
  Sender: FDA-Public Use
  Company Number: US-ELI_LILLY_AND_COMPANY-US201101005313

PATIENT
  Sex: Female

DRUGS (7)
  1. FORTEO [Suspect]
     Indication: OSTEOPOROSIS
     Dosage: 20 UG, QD
     Dates: start: 20110115
  2. CRESTOR [Concomitant]
     Dosage: 20 MG, QD
  3. FORTEO [Suspect]
     Dosage: 20 UG, QD
  4. VITAMIN D [Concomitant]
     Dosage: UNK, QD
  5. FORTEO [Suspect]
     Dosage: 20 UG, QD
  6. MULTI-VITAMIN [Concomitant]
     Dosage: UNK, QD
  7. CALCIUM [Concomitant]
     Dosage: UNK, QD

REACTIONS (5)
  - DYSKINESIA [None]
  - HIP SURGERY [None]
  - MUSCLE SPASMS [None]
  - FEELING COLD [None]
  - HEADACHE [None]
